FAERS Safety Report 5207831-9 (Version None)
Quarter: 2007Q1

REPORT INFORMATION
  Report Type: 
  Country: None (occurrence: None)
  Receive Date: 20070112
  Receipt Date: 20070104
  Transmission Date: 20070707
  Serious: Yes (Hospitalization)
  Sender: FDA-Public Use
  Company Number: FR-PFIZER INC-2007001709

PATIENT
  Age: 67 Year
  Sex: Male
  Weight: 84 kg

DRUGS (9)
  1. INSPRA [Suspect]
     Indication: ISCHAEMIC CARDIOMYOPATHY
     Dosage: DAILY DOSE:25MG-FREQ:EVERY DAY
     Route: 048
     Dates: start: 20060315, end: 20060918
  2. INSPRA [Suspect]
     Indication: CARDIAC FAILURE
  3. FLUOXETINE HYDROCHLORIDE [Concomitant]
     Route: 048
  4. RAMIPRIL [Concomitant]
     Route: 048
  5. ASPIRIN [Concomitant]
     Route: 048
  6. PRAVASTATIN SODIUM [Concomitant]
     Route: 048
  7. BISOPROLOL FUMARATE [Concomitant]
     Route: 048
  8. FLUINDIONE [Concomitant]
     Route: 048
  9. AMIODARONE HYDROCHLORIDE [Concomitant]
     Route: 048

REACTIONS (3)
  - HYPERBILIRUBINAEMIA [None]
  - JAUNDICE [None]
  - RETICULOCYTOSIS [None]
